FAERS Safety Report 7063744-1 (Version None)
Quarter: 2010Q4

REPORT INFORMATION
  Report Type: 
  Country: None (occurrence: None)
  Receive Date: 20101026
  Receipt Date: 20101011
  Transmission Date: 20110411
  Serious: No
  Sender: FDA-Public Use
  Company Number: US-ABBOTT-10P-163-0665025-00

PATIENT
  Sex: Female

DRUGS (2)
  1. LUPRON DEPOT [Suspect]
     Indication: PRODUCT USED FOR UNKNOWN INDICATION
  2. LUPRON DEPOT [Suspect]
     Dates: start: 20101017

REACTIONS (7)
  - ANGER [None]
  - BACK PAIN [None]
  - DEPRESSED MOOD [None]
  - EMOTIONAL DISORDER [None]
  - HEADACHE [None]
  - PAIN IN EXTREMITY [None]
  - UNEVALUABLE EVENT [None]
